FAERS Safety Report 7481157-5 (Version None)
Quarter: 2011Q2

REPORT INFORMATION
  Report Type: 
  Country: None (occurrence: None)
  Receive Date: 20110516
  Receipt Date: 20110511
  Transmission Date: 20111010
  Serious: Yes (Death, Other)
  Sender: FDA-Public Use
  Company Number: PHHY2011BR40094

PATIENT
  Sex: Male

DRUGS (1)
  1. DIOVAN HCT [Suspect]
     Indication: HYPERTENSION
     Dosage: 160 MG VALS AND 12.5 MG AMLO, 1 DF DAILY
     Route: 048

REACTIONS (8)
  - HEAD DISCOMFORT [None]
  - LIMB DISCOMFORT [None]
  - GASTRIC CANCER [None]
  - HYPOAESTHESIA [None]
  - GAIT DISTURBANCE [None]
  - METASTASIS [None]
  - CONSTIPATION [None]
  - ANAEMIA [None]
